FAERS Safety Report 10479581 (Version 2)
Quarter: 2014Q3

REPORT INFORMATION
  Report Type: Spontaneous
  Country: DE (occurrence: DE)
  Receive Date: 20140927
  Receipt Date: 20140927
  Transmission Date: 20150326
  Serious: Yes (Other)
  Sender: FDA-Public Use
  Company Number: DE-TAKEDA-2014TUS008795

PATIENT
  Age: 39 Year
  Sex: Female
  Weight: 52 kg

DRUGS (4)
  1. ENTYVIO [Suspect]
     Active Substance: VEDOLIZUMAB
     Indication: CROHN^S DISEASE
     Dosage: 47 ML, UNK
     Route: 042
     Dates: start: 2014, end: 2014
  2. PREDNISOLONE. [Concomitant]
     Active Substance: PREDNISOLONE
     Indication: CROHN^S DISEASE
     Dosage: 30 MG, UNK
  3. ENTYVIO [Suspect]
     Active Substance: VEDOLIZUMAB
     Dosage: 300 MG, UNK
     Route: 042
     Dates: start: 20140916, end: 20140916
  4. AZATHIOPRINE. [Concomitant]
     Active Substance: AZATHIOPRINE
     Indication: CROHN^S DISEASE
     Dosage: 150 MG, UNK

REACTIONS (6)
  - Bronchospasm [Recovered/Resolved]
  - Hot flush [Recovered/Resolved]
  - Dysphagia [Recovered/Resolved]
  - Urticaria [Recovered/Resolved]
  - Feeling cold [Recovered/Resolved]
  - Infusion related reaction [Recovered/Resolved]

NARRATIVE: CASE EVENT DATE: 20140916
